FAERS Safety Report 8779398 (Version 1)
Quarter: 2012Q4

REPORT INFORMATION
  Report Type: 
  Country: MY (occurrence: MY)
  Receive Date: 20120912
  Receipt Date: 20120912
  Transmission Date: 20130627
  Serious: Yes (Other)
  Sender: FDA-Public Use
  Company Number: MY-PFIZER INC-2012223562

PATIENT
  Age: 16 Year
  Sex: Male

DRUGS (4)
  1. ZELDOX [Suspect]
     Indication: SCHIZOPHRENIA
     Dosage: 20 mg, single
     Route: 030
  2. LITHIUM [Concomitant]
     Dosage: UNK
  3. DIAZEPAM [Concomitant]
  4. RISPERIDONE [Concomitant]

REACTIONS (3)
  - Delirium [Recovered/Resolved]
  - Gaze palsy [Recovered/Resolved]
  - Musculoskeletal stiffness [Recovered/Resolved]
